FAERS Safety Report 6655360-8 (Version None)
Quarter: 2010Q1

REPORT INFORMATION
  Report Type: 
  Country: None (occurrence: None)
  Receive Date: 20100329
  Receipt Date: 20100318
  Transmission Date: 20100710
  Serious: Yes (Hospitalization, Other)
  Sender: FDA-Public Use
  Company Number: PHHY2010AU11982

PATIENT
  Sex: Female

DRUGS (1)
  1. CLOZARIL [Suspect]
     Dosage: 200 MG
     Dates: start: 20060216

REACTIONS (5)
  - DIABETES MELLITUS [None]
  - DROOLING [None]
  - MENTAL DISORDER [None]
  - SALIVARY HYPERSECRETION [None]
  - WEIGHT INCREASED [None]
